FAERS Safety Report 6566114-5 (Version None)
Quarter: 2010Q1

REPORT INFORMATION
  Report Type: 
  Country: None (occurrence: None)
  Receive Date: 20100202
  Receipt Date: 20100126
  Transmission Date: 20100710
  Serious: Yes (Death)
  Sender: FDA-Public Use
  Company Number: CA-ALLERGAN-0914681US

PATIENT
  Age: 80 Year
  Sex: Male

DRUGS (16)
  1. BOTULINUM TOXIN TYPE A [Suspect]
     Indication: MUSCLE SPASTICITY
     Dosage: 200 UNITS, UNK
     Route: 030
     Dates: start: 20081201, end: 20081201
  2. BOTULINUM TOXIN TYPE A [Suspect]
     Dosage: 200 UNITS, SINGLE
     Route: 030
     Dates: start: 20060726, end: 20060726
  3. BOTULINUM TOXIN TYPE A [Suspect]
     Dosage: 200 UNITS, UNK
     Route: 030
     Dates: start: 20061218, end: 20061218
  4. BOTULINUM TOXIN TYPE A [Suspect]
     Dosage: 200 UNITS, UNK
     Route: 030
     Dates: start: 20071016, end: 20071016
  5. BOTULINUM TOXIN TYPE A [Suspect]
     Dosage: 200 UNITS, UNK
     Route: 030
     Dates: start: 20080331, end: 20080331
  6. BOTULINUM TOXIN TYPE A [Suspect]
     Dosage: 400 UNITS, UNK
     Route: 030
     Dates: start: 20080825, end: 20080825
  7. INSULIN [Concomitant]
  8. ACCUPRIL [Concomitant]
  9. HYDROCHLOROTHIAZIDE [Concomitant]
  10. NORVASC [Concomitant]
  11. SENOKOT [Concomitant]
  12. VITAMIN B-12 [Concomitant]
  13. VITAMIN E [Concomitant]
  14. PARIET [Concomitant]
  15. LACTULOSE [Concomitant]
  16. ASPIRIN [Concomitant]

REACTIONS (4)
  - CARDIOMEGALY [None]
  - DIABETES MELLITUS [None]
  - INFLUENZA LIKE ILLNESS [None]
  - PLEURAL EFFUSION [None]
